FAERS Safety Report 9012434 (Version 1)
Quarter: 2013Q1

REPORT INFORMATION
  Report Type: Not Available
  Country: FR (occurrence: FR)
  Receive Date: 20130114
  Receipt Date: 20130114
  Transmission Date: 20140127
  Serious: Yes (Hospitalization)
  Sender: FDA-Public Use
  Company Number: FR-ASTELLAS-2013EU000149

PATIENT
  Age: 88 Year
  Sex: Male
  Weight: 88 kg

DRUGS (3)
  1. VESICARE [Suspect]
     Dosage: 5 MG, UID/QD
     Route: 048
     Dates: start: 201209, end: 20121128
  2. INEXIUM /01479303/ [Suspect]
     Dosage: 20 MG, UID/QD
     Route: 048
     Dates: start: 201209, end: 20121128
  3. MOPRAL                             /00661201/ [Concomitant]
     Dosage: 20 MG, UID/QD
     Route: 048
     Dates: end: 201209

REACTIONS (1)
  - Agranulocytosis [Recovered/Resolved]
